FAERS Safety Report 25103925 (Version 3)
Quarter: 2025Q3

REPORT INFORMATION
  Report Type: Report from Study
  Country: US (occurrence: US)
  Receive Date: 20250321
  Receipt Date: 20250715
  Transmission Date: 20251021
  Serious: Yes (Other)
  Sender: ABBVIE
  Company Number: US-ABBVIE-6186527

PATIENT
  Sex: Female
  Weight: 63.502 kg

DRUGS (9)
  1. SKYRIZI [Suspect]
     Active Substance: RISANKIZUMAB-RZAA
     Indication: Crohn^s disease
     Dosage: FORM STRENGTH: 360 MG
     Route: 058
     Dates: start: 2023
  2. SKYRIZI [Suspect]
     Active Substance: RISANKIZUMAB-RZAA
     Route: 058
     Dates: start: 20240429
  3. FOLIC ACID [Concomitant]
     Active Substance: FOLIC ACID
     Indication: Arthritis
  4. BACLOFEN [Concomitant]
     Active Substance: BACLOFEN
     Indication: Muscle relaxant therapy
  5. METHOTREXATE [Concomitant]
     Active Substance: METHOTREXATE
     Indication: Fibromyalgia
  6. KLONOPIN [Concomitant]
     Active Substance: CLONAZEPAM
     Indication: Anxiety
  7. TRILEPTAL [Concomitant]
     Active Substance: OXCARBAZEPINE
     Indication: Depression
  8. DUPIXENT [Concomitant]
     Active Substance: DUPILUMAB
     Indication: Eczema
  9. NEURONTIN [Concomitant]
     Active Substance: GABAPENTIN
     Indication: Arthralgia

REACTIONS (1)
  - Fistula [Recovered/Resolved]
